FAERS Safety Report 6766869-0 (Version None)
Quarter: 2010Q2

REPORT INFORMATION
  Report Type: 
  Country: None (occurrence: None)
  Receive Date: 20100611
  Receipt Date: 20100525
  Transmission Date: 20101027
  Serious: Yes (Other)
  Sender: FDA-Public Use
  Company Number: PHEH2008US07415

PATIENT
  Sex: Female
  Weight: 57.596 kg

DRUGS (26)
  1. ZOMETA [Suspect]
     Dosage: UNK
     Dates: start: 20020101
  2. ARIMIDEX [Concomitant]
     Dosage: UNK
     Dates: start: 20020101
  3. HYDROCODONE [Concomitant]
     Dosage: 5 MG, QID
  4. XELODA [Concomitant]
     Dosage: UNK
     Dates: start: 20070111
  5. MELATONIN [Concomitant]
  6. COD-LIVER OIL [Concomitant]
  7. RADIATION THERAPY [Concomitant]
     Dosage: UNK
  8. TAMOXIFEN [Concomitant]
     Dosage: UNK
  9. LEUPROLIDE ACETATE [Concomitant]
     Dosage: UNK
     Dates: end: 20020101
  10. ARIMIDEX [Concomitant]
     Dosage: UNK
  11. CAPECITABINE [Concomitant]
     Dosage: UNK
  12. FASLODEX [Concomitant]
  13. DECADRON [Concomitant]
     Dosage: 1 MG
  14. NAVELBINE [Concomitant]
     Dosage: 10 MG
  15. GEMZAR [Concomitant]
     Dosage: 10 MG
  16. FOSAMAX [Concomitant]
     Dosage: UNK
  17. LUPRON [Concomitant]
  18. AVASTIN [Concomitant]
  19. CYTOXAN [Concomitant]
  20. METHOTREXATE [Concomitant]
  21. AMOXICILLIN [Concomitant]
     Dosage: 500 MG, UNK
  22. FEMARA [Concomitant]
  23. GEMCITABINE HCL [Concomitant]
  24. OXYCONTIN [Concomitant]
  25. MEGACE [Concomitant]
  26. AROMASIN [Concomitant]

REACTIONS (43)
  - ADRENAL ADENOMA [None]
  - ALOPECIA [None]
  - ANHEDONIA [None]
  - ANXIETY [None]
  - ATELECTASIS [None]
  - AXILLARY MASS [None]
  - BONE DISORDER [None]
  - BREAST CANCER [None]
  - CHEST WALL MASS [None]
  - CONSTIPATION [None]
  - DEBRIDEMENT [None]
  - DENTAL CARIES [None]
  - DENTAL PLAQUE [None]
  - DERMAL CYST [None]
  - EMPHYSEMA [None]
  - GINGIVAL BLEEDING [None]
  - GINGIVITIS [None]
  - HEADACHE [None]
  - HYDRONEPHROSIS [None]
  - INJURY [None]
  - INTERVERTEBRAL DISC DEGENERATION [None]
  - LYMPHADENOPATHY [None]
  - MALIGNANT BREAST LUMP REMOVAL [None]
  - MALIGNANT MELANOMA [None]
  - METASTASES TO BONE [None]
  - METASTASES TO LIVER [None]
  - METASTASES TO LUNG [None]
  - METASTASES TO SKIN [None]
  - METASTASES TO SPINE [None]
  - ODYNOPHAGIA [None]
  - OSTEOARTHRITIS [None]
  - OSTEONECROSIS OF JAW [None]
  - PAIN [None]
  - PERIODONTAL DISEASE [None]
  - SINUSITIS [None]
  - SKIN NECROSIS [None]
  - SKIN NODULE [None]
  - SKIN ULCER [None]
  - TOOTH DISCOLOURATION [None]
  - TOOTH EXTRACTION [None]
  - TOOTHACHE [None]
  - VISUAL IMPAIRMENT [None]
  - WEIGHT DECREASED [None]
